FAERS Safety Report 4274068-X (Version None)
Quarter: 2004Q1

REPORT INFORMATION
  Report Type: 
  Country: None (occurrence: None)
  Receive Date: 20040115
  Receipt Date: 20040102
  Transmission Date: 20041129
  Serious: Yes (Other)
  Sender: FDA-Public Use
  Company Number: DE-JNJFOC-20031104108

PATIENT
  Age: 31 Year
  Sex: Male
  Weight: 57 kg

DRUGS (4)
  1. RISPERDAL [Suspect]
     Indication: SCHIZOPHRENIA
     Dosage: 4 MG, 1 IN 1 DAY, ORAL
     Route: 048
     Dates: start: 20030825, end: 20031023
  2. AKINETON RETARD (TABLETS) BIPERIDEN HYDROCHLORIDE [Concomitant]
  3. STILNOX (TABLETS) ZOLPIDEM [Concomitant]
  4. .... [Concomitant]

REACTIONS (1)
  - LEUKOPENIA [None]
